FAERS Safety Report 17163669 (Version 42)
Quarter: 2021Q3

REPORT INFORMATION
  Report Type: Other
  Country: DE (occurrence: DE)
  Receive Date: 20191217
  Receipt Date: 20210721
  Transmission Date: 20211014
  Serious: Yes (Hospitalization, Other)
  Sender: FDA-Public Use
  Company Number: DE-ROCHE-2398329

PATIENT
  Sex: Female
  Weight: 62 kg

DRUGS (43)
  1. OCREVUS [Suspect]
     Active Substance: OCRELIZUMAB
     Indication: PROGRESSIVE RELAPSING MULTIPLE SCLEROSIS
     Route: 042
     Dates: start: 20190606
  2. VOLON A [Concomitant]
     Indication: MUSCLE SPASTICITY
     Dosage: ADMINISTERED INTO THE LIQUOR CEREBROSINALIS
     Route: 065
     Dates: end: 20181004
  3. D?MANNOSE [Concomitant]
     Route: 065
  4. DOMPERIDON [Concomitant]
     Active Substance: DOMPERIDONE
     Dosage: AS REQUIRED
     Route: 065
  5. PANTOPRAZOLE [Concomitant]
     Active Substance: PANTOPRAZOLE
  6. VOLON A [Concomitant]
     Dosage: ADMINISTERED INTO THE LIQUOR CEREBROSPINALIS
     Route: 065
     Dates: end: 201911
  7. VOLON A [Concomitant]
     Dosage: ADMINISTERD INTO THE LIQUOR CEREBROSPINALIS
     Route: 037
     Dates: start: 20200409
  8. OVESTIN [Concomitant]
     Active Substance: ESTRIOL
     Dosage: CURRENTLY PAUSED
     Route: 065
  9. CORTISONE [Concomitant]
     Active Substance: CORTISONE
     Route: 065
     Dates: start: 20190405
  10. INFLUENZA VACCINE [Concomitant]
     Active Substance: INFLUENZA VIRUS VACCINE
     Indication: PRODUCT USED FOR UNKNOWN INDICATION
     Route: 065
     Dates: start: 20181018, end: 20181018
  11. FOSFOMYCIN [Concomitant]
     Active Substance: FOSFOMYCIN
     Indication: URINARY TRACT INFECTION
     Route: 065
     Dates: start: 20181111
  12. OCREVUS [Suspect]
     Active Substance: OCRELIZUMAB
     Indication: RELAPSING-REMITTING MULTIPLE SCLEROSIS
     Dosage: FREQUENCY DEVIATING FROM SPC
     Route: 042
     Dates: start: 20180523
  13. OCREVUS [Suspect]
     Active Substance: OCRELIZUMAB
     Indication: RHEUMATOID ARTHRITIS
     Route: 042
     Dates: start: 20181212
  14. OCREVUS [Suspect]
     Active Substance: OCRELIZUMAB
     Dosage: FREQUENCY WAS 182 DAYS
     Route: 042
     Dates: start: 20180523
  15. SATIVEX [Concomitant]
     Active Substance: NABIXIMOLS
     Dosage: AS REQUIRED
     Route: 065
  16. RAMIPRIL. [Concomitant]
     Active Substance: RAMIPRIL
     Dosage: 1?0?1
     Route: 065
     Dates: start: 20190701
  17. PANTOPRAZOL [Concomitant]
     Active Substance: PANTOPRAZOLE SODIUM
     Dosage: AS REQUIRED
     Route: 065
  18. CORTISONE [Concomitant]
     Active Substance: CORTISONE
     Route: 065
  19. EUSAPRIM [Concomitant]
     Active Substance: SULFAMETHOXAZOLE\TRIMETHOPRIM
     Route: 065
  20. VOLON A [Concomitant]
     Dosage: ADMINISTERED INTO THE LIQUOR CEREBROSINALIS
     Route: 065
     Dates: start: 20190403
  21. VOLON A [Concomitant]
     Dosage: ADMINISTERED INTO THE LIQUOR CEREBROSPINALIS
     Route: 065
     Dates: start: 20190626, end: 20190626
  22. RAMIPRIL. [Concomitant]
     Active Substance: RAMIPRIL
     Dosage: AS REQUIRED
     Route: 065
  23. DEKRISTOL [Concomitant]
     Active Substance: CHOLECALCIFEROL
     Dosage: 1 PER WEEK EVERY THREE MONTHS
     Route: 065
  24. NOVALGIN (METAMIZOLE SODIUM) [Concomitant]
     Active Substance: METAMIZOLE SODIUM
     Dosage: AS REQUIRED
     Route: 065
  25. CEFUROX [Concomitant]
     Active Substance: CEFUROXIME AXETIL
     Indication: NASOPHARYNGITIS
     Route: 065
     Dates: start: 20190227, end: 20190301
  26. HEPARIN [Concomitant]
     Active Substance: HEPARIN SODIUM
     Dates: start: 20200618
  27. CANNABIS [Concomitant]
     Active Substance: CANNABIS SATIVA SUBSP. INDICA TOP
  28. OCREVUS [Suspect]
     Active Substance: OCRELIZUMAB
     Dosage: 5TH INFUSION
     Route: 042
     Dates: start: 20191205
  29. RAMIPRIL. [Concomitant]
     Active Substance: RAMIPRIL
     Route: 065
  30. IBUPROFEN. [Concomitant]
     Active Substance: IBUPROFEN
     Dosage: AS REQUIRED
     Route: 065
  31. SALBUTAMOL [Concomitant]
     Active Substance: ALBUTEROL
     Dosage: AS REQUIRED
     Route: 065
  32. NITROFURANTOIN. [Concomitant]
     Active Substance: NITROFURANTOIN
     Indication: PRODUCT USED FOR UNKNOWN INDICATION
     Route: 065
  33. FOLIC ACID. [Concomitant]
     Active Substance: FOLIC ACID
  34. DOMPERIDONE [Concomitant]
     Active Substance: DOMPERIDONE
  35. COVID?19 VACCINE NOS. [Suspect]
     Active Substance: COVID-19 VACCINE NOS
     Indication: PRODUCT USED FOR UNKNOWN INDICATION
     Dosage: SECOND DOSE: 26/MAY/2021
     Route: 065
     Dates: start: 20210415, end: 20210415
  36. VOLON A [Concomitant]
     Route: 037
     Dates: start: 20190911
  37. RAMIPRIL. [Concomitant]
     Active Substance: RAMIPRIL
     Dosage: IN THE EVENING
     Route: 065
  38. PANTOPRAZOL [Concomitant]
     Active Substance: PANTOPRAZOLE SODIUM
     Route: 065
  39. FORMOLICH [Concomitant]
     Active Substance: FORMOTEROL FUMARATE
     Route: 065
  40. CORTISONE [Concomitant]
     Active Substance: CORTISONE
     Indication: PREMEDICATION
     Route: 065
  41. FOSFOMYCIN [Concomitant]
     Active Substance: FOSFOMYCIN
     Dosage: AS REQUIRED
     Route: 065
  42. XIPAMIDE [Concomitant]
     Active Substance: XIPAMIDE
  43. NOVALGIN (METAMIZOLE SODIUM) [Concomitant]
     Active Substance: METAMIZOLE SODIUM

REACTIONS (64)
  - Urinary tract infection bacterial [Recovered/Resolved]
  - Paraesthesia [Not Recovered/Not Resolved]
  - Periorbital swelling [Recovered/Resolved]
  - Oral discomfort [Recovered/Resolved]
  - Illness [Recovered/Resolved]
  - Constipation [Recovered/Resolved]
  - Depression [Recovered/Resolved]
  - Meningism [Recovered/Resolved]
  - Anal incontinence [Recovered/Resolved]
  - Insomnia [Not Recovered/Not Resolved]
  - Muscular weakness [Not Recovered/Not Resolved]
  - Uterine enlargement [Not Recovered/Not Resolved]
  - Cystitis noninfective [Recovered/Resolved]
  - Eyelid ptosis [Recovered/Resolved]
  - Osteoporosis [Not Recovered/Not Resolved]
  - Cataract [Not Recovered/Not Resolved]
  - Ligament sprain [Recovered/Resolved]
  - Cardiac failure [Not Recovered/Not Resolved]
  - Dry skin [Recovered/Resolved]
  - Vision blurred [Not Recovered/Not Resolved]
  - Throat irritation [Recovered/Resolved]
  - Sensation of foreign body [Recovered/Resolved]
  - Bone density increased [Not Recovered/Not Resolved]
  - Bone pain [Not Recovered/Not Resolved]
  - Irritability [Not Recovered/Not Resolved]
  - Feeling hot [Recovered/Resolved]
  - Fracture [Recovered/Resolved]
  - Inappropriate affect [Recovered/Resolved]
  - Pain [Recovered/Resolved]
  - Chills [Recovered/Resolved]
  - Oral herpes [Recovered/Resolved]
  - Cushing^s syndrome [Not Recovered/Not Resolved]
  - Initial insomnia [Not Recovered/Not Resolved]
  - Periorbital swelling [Not Recovered/Not Resolved]
  - Skin induration [Recovered/Resolved]
  - Paraesthesia [Not Recovered/Not Resolved]
  - Weight increased [Not Recovered/Not Resolved]
  - Dyspepsia [Recovered/Resolved]
  - Fall [Unknown]
  - Low density lipoprotein increased [Not Recovered/Not Resolved]
  - Abdominal distension [Recovered/Resolved]
  - Back pain [Not Recovered/Not Resolved]
  - B-lymphocyte count decreased [Not Recovered/Not Resolved]
  - Erythema [Recovered/Resolved]
  - Oedema [Recovered/Resolved]
  - Blood pressure increased [Recovering/Resolving]
  - Blood cholesterol increased [Not Recovered/Not Resolved]
  - Depressed mood [Recovered/Resolved]
  - Vulvovaginal dryness [Unknown]
  - Alopecia [Not Recovered/Not Resolved]
  - Listless [Recovered/Resolved]
  - Seborrhoeic keratosis [Not Recovered/Not Resolved]
  - Vitamin D decreased [Not Recovered/Not Resolved]
  - Dysstasia [Not Recovered/Not Resolved]
  - Sinus disorder [Recovered/Resolved]
  - Emotional distress [Recovered/Resolved]
  - Migraine [Not Recovered/Not Resolved]
  - Fluid retention [Recovered/Resolved]
  - Anal incontinence [Not Recovered/Not Resolved]
  - Influenza like illness [Recovered/Resolved]
  - Fatigue [Recovered/Resolved]
  - Chronic gastritis [Not Recovered/Not Resolved]
  - Asthenia [Not Recovered/Not Resolved]
  - Anal inflammation [Recovered/Resolved]

NARRATIVE: CASE EVENT DATE: 20180523
